FAERS Safety Report 4356726-1 (Version None)
Quarter: 2004Q2

REPORT INFORMATION
  Report Type: 
  Country: None (occurrence: None)
  Receive Date: 20040507
  Receipt Date: 20040503
  Transmission Date: 20050107
  Serious: Yes (Hospitalization)
  Sender: FDA-Public Use
  Company Number: 2004UW03925

PATIENT
  Age: 44 Year
  Sex: Male
  Weight: 97.5234 kg

DRUGS (5)
  1. CRESTOR [Suspect]
     Indication: HYPERTRIGLYCERIDAEMIA
     Dosage: 10 MG QD PO
     Route: 048
     Dates: start: 20031015
  2. ZANAFLEX [Concomitant]
  3. METHADONE HCL [Concomitant]
  4. REMERON [Concomitant]
  5. ACIPHEX [Concomitant]

REACTIONS (18)
  - ALANINE AMINOTRANSFERASE INCREASED [None]
  - ASPARTATE AMINOTRANSFERASE INCREASED [None]
  - ASTHENIA [None]
  - AZOTAEMIA [None]
  - BLOOD PRESSURE SYSTOLIC INCREASED [None]
  - DIFFICULTY IN WALKING [None]
  - LEUKOCYTOSIS [None]
  - NAUSEA [None]
  - NEUROLEPTIC MALIGNANT SYNDROME [None]
  - NEUROPATHY PERIPHERAL [None]
  - OVERDOSE [None]
  - PARAESTHESIA [None]
  - PETECHIAE [None]
  - RASH [None]
  - RENAL FAILURE [None]
  - RHABDOMYOLYSIS [None]
  - VIRAL INFECTION [None]
  - VOMITING [None]
